FAERS Safety Report 6334285-1 (Version None)
Quarter: 2009Q3

REPORT INFORMATION
  Report Type: 
  Country: None (occurrence: None)
  Receive Date: 20090829
  Receipt Date: 20090814
  Transmission Date: 20100115
  Serious: No
  Sender: FDA-Public Use
  Company Number: US-ABBOTT-09P-163-0592065-00

PATIENT
  Sex: Female
  Weight: 68.1 kg

DRUGS (13)
  1. SIMCOR [Suspect]
     Indication: BLOOD CHOLESTEROL INCREASED
     Dosage: 500/20
     Dates: start: 20090601
  2. VERAPAMIL [Concomitant]
     Indication: HYPERTENSION
  3. LISINOPRIL [Concomitant]
     Indication: HYPERTENSION
  4. CELEBREX [Concomitant]
     Indication: ARTHRITIS
  5. OMEPRAZOLE [Concomitant]
     Indication: ULCER
  6. ASPIRIN [Concomitant]
     Indication: FLUSHING
  7. ASPIRIN [Concomitant]
     Indication: PROPHYLAXIS
  8. NITROFURANTOIN [Concomitant]
     Indication: NEPHROLITHIASIS
  9. CLONAZEPAM [Concomitant]
     Indication: ANXIETY
  10. RESPIRDAL [Concomitant]
     Indication: ANXIETY
  11. NORTRIPTYLINE HCL [Concomitant]
     Indication: ANXIETY
  12. KLOR-CON [Concomitant]
     Indication: ELECTROLYTE SUBSTITUTION THERAPY
  13. FUROSEMIDE [Concomitant]
     Indication: OEDEMA

REACTIONS (1)
  - INSOMNIA [None]
